FAERS Safety Report 7222593-1 (Version None)
Quarter: 2011Q1

REPORT INFORMATION
  Report Type: 
  Country: None (occurrence: None)
  Receive Date: 20110103
  Receipt Date: 20101220
  Transmission Date: 20110831
  Serious: Yes (Other)
  Sender: FDA-Public Use
  Company Number: FKO201000603

PATIENT
  Age: 71 Year
  Sex: Female

DRUGS (6)
  1. FLUOROURACIL [Suspect]
     Indication: COLORECTAL CANCER METASTATIC
     Dosage: INTRAVENOUS (NOT OTHERWISE SPECIFIED)
     Route: 042
     Dates: start: 20100510
  2. DEXAMETHASONE [Suspect]
     Dosage: 8 MG; INTRAVENOUS  (NOT OTHERWISE SPECIFIED)
     Route: 042
     Dates: start: 20100510
  3. CALCIUM FOLINATE (CALCIUM FOLINATE) [Suspect]
     Dosage: INTRAVENOUS (NOT OTHERWISE SPECIFIED)
     Route: 042
     Dates: start: 20100510
  4. AVASTIN [Suspect]
     Indication: COLORECTAL CANCER METASTATIC
     Dosage: 280 MG, INTRAVENOUS (NOT OTHERWISE SPECIFIED)
     Route: 042
     Dates: start: 20100510
  5. IRINOTECAN 20MG/ML CONCENTRATE FOR SOLUTION FOR INFUSION (IRINOTECAN H [Suspect]
     Indication: COLORECTAL CANCER METASTATIC
     Dosage: 270 MG; INTRAVENOUS (NOT OTHERWISE SPECIFIED)
     Route: 042
     Dates: start: 20100510
  6. ONDANSETRON [Suspect]
     Dosage: 8 MG, INTRAVENOUS (NOT OTHERWISE SPECIFIED)
     Route: 042
     Dates: start: 20100510

REACTIONS (1)
  - DYSTONIA [None]
